FAERS Safety Report 13372672 (Version 1)
Quarter: 2017Q1

REPORT INFORMATION
  Report Type: Spontaneous
  Country: US (occurrence: US)
  Receive Date: 20170324
  Receipt Date: 20170324
  Transmission Date: 20170429
  Serious: Yes (Disabling, Other)
  Sender: FDA-Public Use
  Company Number: None

PATIENT
  Age: 36 Year
  Sex: Male
  Weight: 70.65 kg

DRUGS (1)
  1. PAROMOMYCIN [Suspect]
     Active Substance: PAROMOMYCIN
     Indication: BLASTOCYSTIS INFECTION
     Dosage: ?          QUANTITY:1 CAPSULE(S);?
     Route: 048
     Dates: start: 20170319, end: 20170319

REACTIONS (5)
  - Dizziness [None]
  - Diarrhoea [None]
  - Deafness [None]
  - Tinnitus [None]
  - Nerve injury [None]

NARRATIVE: CASE EVENT DATE: 20170319
